FAERS Safety Report 9356032 (Version 2)
Quarter: 2013Q4

REPORT INFORMATION
  Report Type: Report from Study
  Country: US (occurrence: US)
  Receive Date: 20130619
  Receipt Date: 20131011
  Transmission Date: 20140711
  Serious: Yes (Hospitalization)
  Sender: FDA-Public Use
  Company Number: US-ELI_LILLY_AND_COMPANY-US201210008821

PATIENT
  Age: 74 Year
  Sex: Female
  Weight: 63.95 kg

DRUGS (14)
  1. TERIPARATIDE [Suspect]
     Indication: OSTEOPOROSIS
     Dosage: 20 UG, QD
     Route: 058
  2. TERIPARATIDE [Suspect]
     Dosage: 20 UG, QD
     Route: 058
  3. TERIPARATIDE [Suspect]
     Dosage: 20 UG, QD
     Route: 058
  4. SEROQUEL [Concomitant]
  5. CYMBALTA [Concomitant]
  6. TEMAZEPAM [Concomitant]
  7. ROZEREM [Concomitant]
  8. ASA [Concomitant]
  9. METOPROLOL [Concomitant]
  10. OMEPRAZOLE [Concomitant]
  11. MIRALAX                            /00754501/ [Concomitant]
  12. TIMOLOL [Concomitant]
     Route: 001
  13. SENNA                              /00142201/ [Concomitant]
  14. DOCUSATE [Concomitant]

REACTIONS (4)
  - Hip fracture [Recovered/Resolved]
  - Fall [Recovered/Resolved]
  - Medication error [Unknown]
  - Impaired healing [Recovered/Resolved]
